FAERS Safety Report 19927115 (Version 1)
Quarter: 2021Q4

REPORT INFORMATION
  Report Type: Spontaneous
  Country: CN (occurrence: CN)
  Receive Date: 20211006
  Receipt Date: 20211006
  Transmission Date: 20220303
  Serious: Yes (Hospitalization)
  Sender: FDA-Public Use
  Company Number: CN-BAXTER-2021BAX030987

PATIENT
  Age: 45 Year
  Sex: Female
  Weight: 60 kg

DRUGS (21)
  1. CYCLOPHOSPHAMIDE [Suspect]
     Active Substance: CYCLOPHOSPHAMIDE
     Indication: Benign hydatidiform mole
     Dosage: 0.9% SODIUM CHLORIDE INJECTION 50 ML + CYCLOPHOSPHAMIDE FOR INJECTION 970 MG
     Route: 042
     Dates: start: 20210826, end: 20210826
  2. CYCLOPHOSPHAMIDE [Suspect]
     Active Substance: CYCLOPHOSPHAMIDE
     Dosage: DOSE REINTRODUCED?0.9% SODIUM CHLORIDE INJECTION 50 ML + CYCLOPHOSPHAMIDE FOR INJECTION 970 MG
     Route: 042
  3. SODIUM CHLORIDE [Suspect]
     Active Substance: SODIUM CHLORIDE
     Indication: Medication dilution
     Dosage: 0.9% SODIUM CHLORIDE INJECTION 20 ML + ACTINOMYCIN D FOR INJECTION 0.5 MG
     Route: 042
     Dates: start: 20210819, end: 20210820
  4. SODIUM CHLORIDE [Suspect]
     Active Substance: SODIUM CHLORIDE
     Dosage: 0.9% SODIUM CHLORIDE INJECTION 750 ML + ETOPOSIDE INJECTION 0.162 G
     Route: 041
     Dates: start: 20210819, end: 20210820
  5. SODIUM CHLORIDE [Suspect]
     Active Substance: SODIUM CHLORIDE
     Dosage: 0.9% SODIUM CHLORIDE INJECTION 50 ML + CYCLOPHOSPHAMIDE FOR INJECTION 970 MG
     Route: 042
     Dates: start: 20210826
  6. DEXTROSE [Suspect]
     Active Substance: DEXTROSE
     Indication: Medication dilution
     Dosage: 5% GLUCOSE INJECTION 500 ML + METHOTREXATE FOR INJECTION 0.324G
     Route: 041
     Dates: start: 20210819
  7. DEXTROSE [Suspect]
     Active Substance: DEXTROSE
     Dosage: 5% GLUCOSE INJECTION 50 ML + METHOTREXATE FOR INJECTION 0.162 G
     Route: 042
     Dates: start: 20210819
  8. ETOPOSIDE [Suspect]
     Active Substance: ETOPOSIDE
     Indication: Benign hydatidiform mole
     Dosage: 0.9% SODIUM CHLORIDE INJECTION 750 ML + ETOPOSIDE INJECTION 0.162 G
     Route: 041
     Dates: start: 20210819, end: 20210820
  9. ETOPOSIDE [Suspect]
     Active Substance: ETOPOSIDE
     Dosage: 0.9% SODIUM CHLORIDE INJECTION 750 ML + ETOPOSIDE INJECTION 0.162 G?DOSE REINTRODUCED
     Route: 041
  10. LEUCOVORIN CALCIUM [Suspect]
     Active Substance: LEUCOVORIN CALCIUM
     Indication: Benign hydatidiform mole
     Route: 030
     Dates: start: 20210821, end: 20210821
  11. LEUCOVORIN CALCIUM [Suspect]
     Active Substance: LEUCOVORIN CALCIUM
     Dosage: DOSE REINTRODUCED
     Route: 030
  12. LEUCOVORIN CALCIUM [Suspect]
     Active Substance: LEUCOVORIN CALCIUM
     Route: 030
     Dates: start: 20210820, end: 20210820
  13. LEUCOVORIN CALCIUM [Suspect]
     Active Substance: LEUCOVORIN CALCIUM
     Dosage: DOSE REINTRODUCED
     Route: 030
  14. VINCRISTINE SULFATE [Suspect]
     Active Substance: VINCRISTINE SULFATE
     Indication: Benign hydatidiform mole
     Dosage: VINCRISTINE SULFATE FOR INJECTION 1.61 MG + 0.9% SODIUM CHLORIDE INJECTION 180 MG
     Route: 042
     Dates: start: 20210826, end: 20210826
  15. VINCRISTINE SULFATE [Suspect]
     Active Substance: VINCRISTINE SULFATE
     Dosage: VINCRISTINE SULFATE FOR INJECTION 1.61 MG + 0.9% SODIUM CHLORIDE INJECTION 180 MG?DOSE REINTRODUCED
     Route: 042
  16. METHOTREXATE [Suspect]
     Active Substance: METHOTREXATE
     Indication: Benign hydatidiform mole
     Dosage: 5% GLUCOSE INJECTION 500 ML + METHOTREXATE FOR INJECTION 0.324G
     Route: 041
     Dates: start: 20210819, end: 20210819
  17. METHOTREXATE [Suspect]
     Active Substance: METHOTREXATE
     Dosage: 5% GLUCOSE INJECTION 500 ML + METHOTREXATE FOR INJECTION 0.324G?DOSE REINTRODUCED
     Route: 041
  18. METHOTREXATE [Suspect]
     Active Substance: METHOTREXATE
     Dosage: 5% GLUCOSE INJECTION 50 ML + METHOTREXATE FOR INJECTION 0.162 G
     Route: 042
     Dates: start: 20210819, end: 20210819
  19. METHOTREXATE [Suspect]
     Active Substance: METHOTREXATE
     Dosage: DOSE REINTRODUCED?5% GLUCOSE INJECTION 50 ML + METHOTREXATE FOR INJECTION 0.162 G
     Route: 042
  20. ACTINOMYCIN D [Suspect]
     Active Substance: DACTINOMYCIN
     Indication: Benign hydatidiform mole
     Dosage: 0.9% SODIUM CHLORIDE INJECTION 20 ML + ACTINOMYCIN D FOR INJECTION 0.5 MG
     Route: 042
     Dates: start: 20210819, end: 20210820
  21. ACTINOMYCIN D [Suspect]
     Active Substance: DACTINOMYCIN
     Dosage: 0.9% SODIUM CHLORIDE INJECTION 20 ML + ACTINOMYCIN D FOR INJECTION 0.5 MG?DOSE REINTRODUCED
     Route: 042

REACTIONS (1)
  - Granulocytopenia [Recovering/Resolving]

NARRATIVE: CASE EVENT DATE: 20210907
